FAERS Safety Report 16783827 (Version 1)
Quarter: 2019Q3

REPORT INFORMATION
  Report Type: Spontaneous
  Country: IL (occurrence: IL)
  Receive Date: 20190908
  Receipt Date: 20190908
  Transmission Date: 20191005
  Serious: Yes (Death)
  Sender: FDA-Public Use
  Company Number: IL-BEH-2019106496

PATIENT
  Age: 93 Year
  Sex: Female

DRUGS (6)
  1. CARDIZEM [Concomitant]
     Active Substance: DILTIAZEM HYDROCHLORIDE
     Route: 065
  2. APIXABAN [Concomitant]
     Active Substance: APIXABAN
     Dosage: 2.5 MILLIGRAM, QD
     Route: 048
     Dates: start: 20180323, end: 20190810
  3. PROCOR [AMIODARONE HYDROCHLORIDE] [Concomitant]
     Active Substance: AMIODARONE HYDROCHLORIDE
     Route: 065
  4. DIOVAN [Concomitant]
     Active Substance: VALSARTAN
     Route: 065
  5. PROTHROMBIN COMPLEX CONCENTRATE NOS [Suspect]
     Active Substance: COAGULATION FACTOR IX HUMAN\COAGULATION FACTOR VII HUMAN\COAGULATION FACTOR X HUMAN\PROTHROMBIN
     Indication: PROCOAGULANT THERAPY
     Dosage: UNK
     Route: 065
     Dates: start: 20190811
  6. LIPITOR [Concomitant]
     Active Substance: ATORVASTATIN CALCIUM
     Dosage: UNK
     Route: 065
     Dates: start: 2015

REACTIONS (8)
  - Hypercoagulation [Fatal]
  - Liver function test increased [Fatal]
  - Haemoglobin decreased [Fatal]
  - Platelet count decreased [Fatal]
  - Septic shock [Fatal]
  - Blood pressure fluctuation [Fatal]
  - Aspartate aminotransferase increased [Fatal]
  - Blood lactic acid increased [Fatal]

NARRATIVE: CASE EVENT DATE: 20190813
